FAERS Safety Report 5892218-6 (Version None)
Quarter: 2008Q3

REPORT INFORMATION
  Report Type: 
  Country: None (occurrence: None)
  Receive Date: 20080922
  Receipt Date: 20080910
  Transmission Date: 20090109
  Serious: Yes (Other)
  Sender: FDA-Public Use
  Company Number: ES-GENENTECH-268225

PATIENT
  Age: 22 Year
  Sex: Male

DRUGS (2)
  1. MABTHERA [Suspect]
     Indication: CASTLEMAN'S DISEASE
     Dosage: UNK
  2. CORTICOSTEROID (UNK INGREDIENTS) [Suspect]
     Indication: CASTLEMAN'S DISEASE

REACTIONS (1)
  - LEUKOENCEPHALOPATHY [None]
